FAERS Safety Report 9457311 (Version 1)
Quarter: 2013Q3

REPORT INFORMATION
  Report Type: Spontaneous
  Country: FR (occurrence: FR)
  Receive Date: 20130814
  Receipt Date: 20130814
  Transmission Date: 20140515
  Serious: Yes (Hospitalization)
  Sender: FDA-Public Use
  Company Number: PHHY2013FR085840

PATIENT
  Age: 14 Year
  Sex: Female

DRUGS (2)
  1. RITALINE [Suspect]
     Indication: DISTURBANCE IN ATTENTION
     Dosage: UNK UKN, UNK
     Route: 048
     Dates: end: 201302
  2. INDOCID [Suspect]
     Indication: HEADACHE
     Dosage: 1 DF, QD
     Dates: start: 20130131, end: 20130131

REACTIONS (4)
  - Malaise [Recovered/Resolved]
  - Loss of consciousness [Recovered/Resolved]
  - Hypertension [Recovered/Resolved]
  - Headache [Recovered/Resolved]
